FAERS Safety Report 9126818 (Version 1)
Quarter: 2013Q1

REPORT INFORMATION
  Report Type: Spontaneous
  Country: US (occurrence: US)
  Receive Date: 20130122
  Receipt Date: 20130122
  Transmission Date: 20140127
  Serious: No
  Sender: FDA-Public Use
  Company Number: US-ROXANE LABORATORIES, INC.-2013-RO-00082RO

PATIENT
  Sex: Female

DRUGS (1)
  1. CODEINE SULFATE [Suspect]

REACTIONS (2)
  - Mental status changes [Unknown]
  - Anxiety [Unknown]
